FAERS Safety Report 25208329 (Version 1)
Quarter: 2025Q2

REPORT INFORMATION
  Report Type: Spontaneous
  Country: US (occurrence: None)
  Receive Date: 20250416
  Receipt Date: 20250416
  Transmission Date: 20250717
  Serious: Yes (unspecified)
  Sender: FDA-CTU
  Company Number: None

PATIENT
  Age: 65 Year
  Sex: Male
  Weight: 93.6 kg

DRUGS (1)
  1. LEQVIO [Suspect]
     Active Substance: INCLISIRAN SODIUM

REACTIONS (5)
  - Cough [None]
  - Throat irritation [None]
  - Dysphagia [None]
  - Swollen tongue [None]
  - Erythema [None]

NARRATIVE: CASE EVENT DATE: 20250403
